FAERS Safety Report 23107716 (Version 1)
Quarter: 2023Q4

REPORT INFORMATION
  Report Type: Spontaneous
  Country: US (occurrence: US)
  Receive Date: 20231026
  Receipt Date: 20231026
  Transmission Date: 20240110
  Serious: Yes (Death)
  Sender: FDA-Public Use
  Company Number: US-ROCHE-3444907

PATIENT
  Sex: Female

DRUGS (59)
  1. CAPECITABINE [Suspect]
     Active Substance: CAPECITABINE
     Indication: Breast cancer metastatic
     Route: 065
     Dates: start: 20180414, end: 20190117
  2. CAPECITABINE [Suspect]
     Active Substance: CAPECITABINE
     Route: 065
     Dates: start: 20190813, end: 20191210
  3. CAPECITABINE [Suspect]
     Active Substance: CAPECITABINE
     Route: 065
     Dates: start: 20191211, end: 20200323
  4. CAPECITABINE [Suspect]
     Active Substance: CAPECITABINE
     Route: 065
     Dates: start: 20190904, end: 20200407
  5. ADO-TRASTUZUMAB EMTANSINE [Suspect]
     Active Substance: ADO-TRASTUZUMAB EMTANSINE
     Indication: Product used for unknown indication
     Route: 065
     Dates: start: 20191126, end: 20200414
  6. ADO-TRASTUZUMAB EMTANSINE [Suspect]
     Active Substance: ADO-TRASTUZUMAB EMTANSINE
     Route: 065
     Dates: start: 20190411, end: 20200613
  7. ADO-TRASTUZUMAB EMTANSINE [Suspect]
     Active Substance: ADO-TRASTUZUMAB EMTANSINE
     Route: 065
     Dates: start: 20200622, end: 20200804
  8. ADO-TRASTUZUMAB EMTANSINE [Suspect]
     Active Substance: ADO-TRASTUZUMAB EMTANSINE
     Route: 065
     Dates: start: 20190316, end: 20190919
  9. ADO-TRASTUZUMAB EMTANSINE [Suspect]
     Active Substance: ADO-TRASTUZUMAB EMTANSINE
     Route: 065
     Dates: start: 20180124, end: 20180928
  10. ADO-TRASTUZUMAB EMTANSINE [Suspect]
     Active Substance: ADO-TRASTUZUMAB EMTANSINE
     Route: 065
     Dates: start: 20190604, end: 20191223
  11. PALBOCICLIB [Suspect]
     Active Substance: PALBOCICLIB
     Indication: Product used for unknown indication
     Route: 065
     Dates: start: 20190401, end: 20190430
  12. PALBOCICLIB [Suspect]
     Active Substance: PALBOCICLIB
     Dosage: CYCLE 2
     Route: 065
     Dates: start: 20190501, end: 20190524
  13. PALBOCICLIB [Suspect]
     Active Substance: PALBOCICLIB
     Dosage: CYCLE 3
     Route: 065
     Dates: start: 20190604, end: 20190625
  14. PALBOCICLIB [Suspect]
     Active Substance: PALBOCICLIB
     Dosage: CYCLE 4
     Route: 065
     Dates: start: 20190705, end: 20190802
  15. PALBOCICLIB [Suspect]
     Active Substance: PALBOCICLIB
     Route: 065
     Dates: start: 20181208, end: 20181228
  16. PALBOCICLIB [Suspect]
     Active Substance: PALBOCICLIB
     Route: 065
     Dates: start: 20190105, end: 20190125
  17. PALBOCICLIB [Suspect]
     Active Substance: PALBOCICLIB
     Route: 065
     Dates: start: 20190202, end: 20190207
  18. PALBOCICLIB [Suspect]
     Active Substance: PALBOCICLIB
     Route: 065
     Dates: start: 20170904, end: 20171004
  19. PALBOCICLIB [Suspect]
     Active Substance: PALBOCICLIB
     Route: 065
     Dates: start: 20171005, end: 20171102
  20. PALBOCICLIB [Suspect]
     Active Substance: PALBOCICLIB
     Route: 065
     Dates: start: 20171130, end: 20171201
  21. PALBOCICLIB [Suspect]
     Active Substance: PALBOCICLIB
     Route: 065
     Dates: start: 20171202, end: 20171230
  22. PALBOCICLIB [Suspect]
     Active Substance: PALBOCICLIB
     Dosage: CYCLE 5
     Route: 065
     Dates: start: 20171231, end: 20180128
  23. PALBOCICLIB [Suspect]
     Active Substance: PALBOCICLIB
     Dosage: CYCLE 6
     Route: 065
     Dates: start: 20180129, end: 20180224
  24. PALBOCICLIB [Suspect]
     Active Substance: PALBOCICLIB
     Dosage: CYCLE 7
     Route: 065
     Dates: start: 20180227, end: 20180324
  25. PALBOCICLIB [Suspect]
     Active Substance: PALBOCICLIB
     Dosage: CYCLE 7
     Route: 065
     Dates: start: 20180918, end: 20181008
  26. PALBOCICLIB [Suspect]
     Active Substance: PALBOCICLIB
     Dosage: CYCLE 2
     Route: 065
     Dates: start: 20181101, end: 20181122
  27. PALBOCICLIB [Suspect]
     Active Substance: PALBOCICLIB
     Dosage: CYCLE 3
     Route: 065
     Dates: start: 20181203, end: 20181224
  28. PALBOCICLIB [Suspect]
     Active Substance: PALBOCICLIB
     Dosage: CYCLE 4
     Route: 065
     Dates: start: 20190102, end: 20190128
  29. PALBOCICLIB [Suspect]
     Active Substance: PALBOCICLIB
     Dosage: CYCLE 5
     Route: 065
     Dates: start: 20190131, end: 20190221
  30. PALBOCICLIB [Suspect]
     Active Substance: PALBOCICLIB
     Dosage: CYCLE 6
     Route: 065
     Dates: start: 20190307, end: 20190321
  31. PALBOCICLIB [Suspect]
     Active Substance: PALBOCICLIB
     Dosage: CYCLE 7
     Route: 065
     Dates: start: 20190328, end: 20190418
  32. PALBOCICLIB [Suspect]
     Active Substance: PALBOCICLIB
     Dosage: CYCLE 8
     Route: 065
     Dates: start: 20190425, end: 20190514
  33. PALBOCICLIB [Suspect]
     Active Substance: PALBOCICLIB
     Dosage: CYCLE 7
     Route: 065
     Dates: start: 20180209, end: 20180302
  34. PALBOCICLIB [Suspect]
     Active Substance: PALBOCICLIB
     Dosage: CYCLE 2
     Route: 065
     Dates: start: 20180313, end: 20180402
  35. PALBOCICLIB [Suspect]
     Active Substance: PALBOCICLIB
     Dosage: CYCLE 3
     Route: 065
     Dates: start: 20180410, end: 20180501
  36. PALBOCICLIB [Suspect]
     Active Substance: PALBOCICLIB
     Dosage: CYCLE 4
     Route: 065
     Dates: start: 20180508, end: 20180725
  37. PALBOCICLIB [Suspect]
     Active Substance: PALBOCICLIB
     Route: 065
     Dates: start: 20181227, end: 20190116
  38. PALBOCICLIB [Suspect]
     Active Substance: PALBOCICLIB
     Route: 065
     Dates: start: 20190124, end: 20190315
  39. PALBOCICLIB [Suspect]
     Active Substance: PALBOCICLIB
     Route: 065
     Dates: start: 20190322, end: 20190416
  40. PALBOCICLIB [Suspect]
     Active Substance: PALBOCICLIB
     Dosage: CYCLE 1
     Route: 065
     Dates: start: 20180319, end: 20180408
  41. PALBOCICLIB [Suspect]
     Active Substance: PALBOCICLIB
     Route: 065
     Dates: start: 20180424, end: 20180514
  42. PALBOCICLIB [Suspect]
     Active Substance: PALBOCICLIB
     Route: 065
     Dates: start: 20180124, end: 20180717
  43. PALBOCICLIB [Suspect]
     Active Substance: PALBOCICLIB
     Route: 065
     Dates: start: 20190222, end: 20190315
  44. FULVESTRANT [Suspect]
     Active Substance: FULVESTRANT
     Indication: Product used for unknown indication
     Route: 065
     Dates: start: 20190401, end: 20191122
  45. FULVESTRANT [Suspect]
     Active Substance: FULVESTRANT
     Route: 065
     Dates: start: 20181018, end: 20190207
  46. FULVESTRANT [Suspect]
     Active Substance: FULVESTRANT
     Route: 065
     Dates: start: 20181002, end: 20190314
  47. FULVESTRANT [Suspect]
     Active Substance: FULVESTRANT
     Route: 065
     Dates: start: 20181030, end: 20190314
  48. FULVESTRANT [Suspect]
     Active Substance: FULVESTRANT
     Route: 065
     Dates: start: 20181219, end: 20190321
  49. ANASTROZOLE [Suspect]
     Active Substance: ANASTROZOLE
     Indication: Product used for unknown indication
     Route: 065
     Dates: start: 20190502, end: 20190613
  50. ANASTROZOLE [Suspect]
     Active Substance: ANASTROZOLE
     Route: 065
     Dates: start: 20180209
  51. ANASTROZOLE [Suspect]
     Active Substance: ANASTROZOLE
     Route: 065
     Dates: start: 20171212, end: 20201210
  52. EVEROLIMUS [Suspect]
     Active Substance: EVEROLIMUS
     Indication: Product used for unknown indication
     Route: 065
     Dates: start: 20191126, end: 20200414
  53. EVEROLIMUS [Suspect]
     Active Substance: EVEROLIMUS
     Route: 065
     Dates: start: 20180703, end: 20180928
  54. EVEROLIMUS [Suspect]
     Active Substance: EVEROLIMUS
     Route: 065
     Dates: start: 20190604, end: 20191127
  55. ALPELISIB [Suspect]
     Active Substance: ALPELISIB
     Indication: Product used for unknown indication
     Route: 065
     Dates: start: 20201209, end: 20210401
  56. ALPELISIB [Suspect]
     Active Substance: ALPELISIB
     Route: 065
     Dates: start: 20200506, end: 20200628
  57. ERIBULIN [Suspect]
     Active Substance: ERIBULIN
     Indication: Product used for unknown indication
     Route: 065
     Dates: start: 20210415
  58. LETROZOLE [Suspect]
     Active Substance: LETROZOLE
     Indication: Product used for unknown indication
     Route: 065
     Dates: start: 20170828, end: 20180130
  59. GEMCITABINE [Suspect]
     Active Substance: GEMCITABINE
     Indication: Product used for unknown indication
     Route: 065
     Dates: start: 20191230, end: 20200601

REACTIONS (4)
  - Septic shock [Fatal]
  - Urinary tract infection [Fatal]
  - Bacteraemia [Fatal]
  - Renal injury [Fatal]

NARRATIVE: CASE EVENT DATE: 20180928
